FAERS Safety Report 12899200 (Version 1)
Quarter: 2016Q4

REPORT INFORMATION
  Report Type: Report from Study
  Country: JP (occurrence: JP)
  Receive Date: 20161101
  Receipt Date: 20161101
  Transmission Date: 20170207
  Serious: Yes (Other)
  Sender: FDA-Public Use
  Company Number: PHJP2016JP028773

PATIENT
  Age: 49 Year
  Sex: Male

DRUGS (1)
  1. COSENTYX [Suspect]
     Active Substance: SECUKINUMAB
     Indication: PSORIATIC ARTHROPATHY
     Dosage: UNK
     Route: 058
     Dates: start: 20160701

REACTIONS (4)
  - Pneumonia [Unknown]
  - Diarrhoea [Unknown]
  - Asthenia [Unknown]
  - Atypical mycobacterial infection [Unknown]

NARRATIVE: CASE EVENT DATE: 20161007
